FAERS Safety Report 8551192-4 (Version None)
Quarter: 2012Q3

REPORT INFORMATION
  Report Type: 
  Country: None (occurrence: None)
  Receive Date: 20120730
  Receipt Date: 20120720
  Transmission Date: 20120928
  Serious: Yes (Other)
  Sender: FDA-Public Use
  Company Number: ES-JNJFOC-20120711659

PATIENT
  Sex: Female

DRUGS (4)
  1. REMICADE [Suspect]
     Indication: SPONDYLOARTHROPATHY
     Dosage: DOSE REPORTED AS ^5^
     Route: 042
  2. FOLIC ACID [Concomitant]
  3. ACETAMINOPHEN [Concomitant]
  4. CALCIUM WITH VITAMIN D [Concomitant]

REACTIONS (1)
  - IRIDOCYCLITIS [None]
